FAERS Safety Report 21541115 (Version 1)
Quarter: 2022Q4

REPORT INFORMATION
  Report Type: Spontaneous
  Country: DK (occurrence: DK)
  Receive Date: 20221102
  Receipt Date: 20221102
  Transmission Date: 20230113
  Serious: Yes (Hospitalization, Other)
  Sender: FDA-Public Use
  Company Number: DK-NOVARTISPH-NVSC2022DK240880

PATIENT
  Age: 43 Year
  Sex: Male

DRUGS (2)
  1. METHYLPHENIDATE [Suspect]
     Active Substance: METHYLPHENIDATE
     Indication: Product used for unknown indication
     Dosage: 10 MG (1 GLASS OF 10MG IN TOTAL)
     Route: 065
  2. METHYLPHENIDATE HYDROCHLORIDE [Suspect]
     Active Substance: METHYLPHENIDATE HYDROCHLORIDE
     Indication: Product used for unknown indication
     Dosage: 18 MG (1 GLASS OF 18MG IN TOTAL)
     Route: 065

REACTIONS (7)
  - Dizziness [Unknown]
  - Cerebral thrombosis [Recovered/Resolved with Sequelae]
  - Visual snow syndrome [Unknown]
  - Thrombosis [Recovered/Resolved with Sequelae]
  - Memory impairment [Unknown]
  - Inappropriate schedule of product administration [Unknown]
  - Product communication issue [Unknown]

NARRATIVE: CASE EVENT DATE: 20220116
